FAERS Safety Report 24248999 (Version 2)
Quarter: 2024Q3

REPORT INFORMATION
  Report Type: Spontaneous
  Country: US (occurrence: US)
  Receive Date: 20240826
  Receipt Date: 20240916
  Transmission Date: 20241016
  Serious: Yes (Other)
  Sender: MYLAN
  Company Number: US-MYLANLABS-2024M1077203

PATIENT
  Age: 69 Year
  Sex: Female
  Weight: 63.04 kg

DRUGS (9)
  1. XANAX [Suspect]
     Active Substance: ALPRAZOLAM
     Indication: Anxiety
     Dosage: 0.25 MILLIGRAM, TID (THREE TIMES A DAY)
     Route: 065
     Dates: start: 20240626, end: 20240814
  2. XANAX [Suspect]
     Active Substance: ALPRAZOLAM
     Indication: Post-acute COVID-19 syndrome
     Dosage: 0.25 MILLIGRAM, TID (THREE TIMES A DAY)
     Route: 065
     Dates: start: 20240826
  3. XANAX [Suspect]
     Active Substance: ALPRAZOLAM
     Indication: Mitral valve prolapse
  4. XANAX [Suspect]
     Active Substance: ALPRAZOLAM
     Indication: Chest pain
  5. XANAX [Suspect]
     Active Substance: ALPRAZOLAM
     Indication: Nausea
  6. XANAX [Suspect]
     Active Substance: ALPRAZOLAM
     Indication: Hypertension
  7. VITAMIN D [Concomitant]
     Active Substance: VITAMIN D NOS
     Dosage: UNK
     Route: 065
  8. CALCIUM [Concomitant]
     Active Substance: CALCIUM
     Dosage: UNK
     Route: 065
  9. COENZYME Q10 [Concomitant]
     Active Substance: DIETARY SUPPLEMENT\UBIDECARENONE
     Dosage: UNK
     Route: 065

REACTIONS (4)
  - Withdrawal hypertension [Unknown]
  - Anxiety [Unknown]
  - Withdrawal syndrome [Unknown]
  - Off label use [Unknown]

NARRATIVE: CASE EVENT DATE: 20240626
